FAERS Safety Report 4762780-5 (Version None)
Quarter: 2005Q3

REPORT INFORMATION
  Report Type: 
  Country: None (occurrence: None)
  Receive Date: 20050901
  Receipt Date: 20050721
  Transmission Date: 20060218
  Serious: No
  Sender: FDA-Public Use
  Company Number: FABR-11179

PATIENT
  Age: 22 Year
  Sex: Male
  Weight: 68.6 kg

DRUGS (6)
  1. FABRAZYME [Suspect]
     Indication: FABRY'S DISEASE
     Dosage: 70 MG Q2WKS, IV
     Route: 042
     Dates: start: 20050711
  2. ACETAMINOPHEN [Concomitant]
  3. BENADRYL [Concomitant]
  4. VALIUM [Concomitant]
  5. TEGRETOL [Concomitant]
  6. DILANTIN [Concomitant]

REACTIONS (4)
  - CHEST PAIN [None]
  - FATIGUE [None]
  - RASH [None]
  - URTICARIA [None]
